FAERS Safety Report 23537919 (Version 1)
Quarter: 2024Q1

REPORT INFORMATION
  Report Type: Spontaneous
  Country: US (occurrence: US)
  Receive Date: 20240219
  Receipt Date: 20240219
  Transmission Date: 20240409
  Serious: Yes (Other)
  Sender: FDA-Public Use
  Company Number: US-OTSUKA PHARMACEUTICAL NETHERLANDS B.V.-AUR-004890

PATIENT
  Age: 67 Year
  Sex: Male

DRUGS (2)
  1. LUPKYNIS [Suspect]
     Active Substance: VOCLOSPORIN
     Indication: Lupus nephritis
     Dosage: 23.7 MILLIGRAM, BID
     Route: 048
     Dates: start: 20231221, end: 20231229
  2. LUPKYNIS [Suspect]
     Active Substance: VOCLOSPORIN
     Dosage: 23.7 MILLIGRAM, BID
     Route: 048

REACTIONS (7)
  - Hypertension [Recovered/Resolved]
  - Memory impairment [Unknown]
  - Pain [Unknown]
  - Arthralgia [Unknown]
  - Joint swelling [Unknown]
  - Fall [Unknown]
  - Micturition disorder [Unknown]

NARRATIVE: CASE EVENT DATE: 20231229
